FAERS Safety Report 7059640-6 (Version None)
Quarter: 2010Q4

REPORT INFORMATION
  Report Type: 
  Country: None (occurrence: None)
  Receive Date: 20101025
  Receipt Date: 20101012
  Transmission Date: 20110411
  Serious: Yes (Other)
  Sender: FDA-Public Use
  Company Number: DE-ELI_LILLY_AND_COMPANY-DE201009004366

PATIENT
  Age: 49 Year
  Sex: Female

DRUGS (7)
  1. CYMBALTA [Suspect]
     Indication: PAIN
     Dosage: 30 MG, DAILY (1/D)
     Route: 048
     Dates: start: 20060101
  2. CYMBALTA [Suspect]
     Dosage: 60 MG, DAILY (1/D)
     Dates: start: 20061201
  3. FLUOXETINE HCL [Concomitant]
  4. PHENHYDAN                               /GFR/ [Concomitant]
  5. TETRAZEPAM [Concomitant]
     Dosage: UNK, AS NEEDED
  6. DICLOFENAC SODIUM [Concomitant]
     Dosage: UNK, AS NEEDED
  7. OMEPRAZOLE [Concomitant]

REACTIONS (7)
  - ABDOMINAL PAIN UPPER [None]
  - BLOOD PRESSURE DECREASED [None]
  - HEART RATE INCREASED [None]
  - MOOD SWINGS [None]
  - OFF LABEL USE [None]
  - PALPITATIONS [None]
  - VERTIGO [None]
